FAERS Safety Report 12922726 (Version 3)
Quarter: 2017Q1

REPORT INFORMATION
  Report Type: Spontaneous
  Country: JP (occurrence: JP)
  Receive Date: 20161109
  Receipt Date: 20170307
  Transmission Date: 20170428
  Serious: Yes (Death, Other)
  Sender: FDA-Public Use
  Company Number: JP-ROCHE-1851952

PATIENT
  Age: 53 Year
  Sex: Female
  Weight: 45 kg

DRUGS (14)
  1. TAXOTERE [Suspect]
     Active Substance: DOCETAXEL
     Indication: BREAST CANCER
     Dosage: DOSE INTERVAL UNCERTAINTY
     Route: 041
     Dates: start: 20160829, end: 20160920
  2. HERCEPTIN [Suspect]
     Active Substance: TRASTUZUMAB
     Indication: BREAST CANCER
     Route: 041
     Dates: start: 20160920, end: 20160920
  3. SODIUM CHLORIDE. [Concomitant]
     Active Substance: SODIUM CHLORIDE
     Route: 065
  4. FERROMIA [Concomitant]
     Active Substance: FERROUS CITRATE
     Dosage: AMOUNT OF SINGLE-DOSE: 100 (UNIT UNCERTAINTY)
     Route: 048
  5. HERCEPTIN [Suspect]
     Active Substance: TRASTUZUMAB
     Indication: BREAST CANCER
     Route: 041
     Dates: start: 20160829, end: 20160829
  6. MAGMITT [Concomitant]
     Active Substance: MAGNESIUM OXIDE
     Dosage: AMOUNT OF SINGLE-DOSE: 330 (UNIT UNCERTAINTY)
     Route: 048
  7. ELNEOPA [Concomitant]
     Active Substance: UNSPECIFIED INGREDIENT
     Dosage: DOSAGE IS UNCERTAIN.
     Route: 065
  8. PERJETA [Suspect]
     Active Substance: PERTUZUMAB
     Route: 041
     Dates: start: 20160920, end: 20161017
  9. FAMOTIDINE D [Concomitant]
     Active Substance: FAMOTIDINE
     Indication: ABDOMINAL PAIN UPPER
     Route: 048
     Dates: start: 20160526
  10. DECADRON [Concomitant]
     Active Substance: DEXAMETHASONE
     Indication: BREAST CANCER
     Dosage: DOSE INTERVAL UNCERTAINTY
     Route: 042
     Dates: start: 20160829, end: 20160920
  11. ONETRAM [Concomitant]
     Active Substance: TRAMADOL HYDROCHLORIDE
     Indication: CANCER PAIN
     Route: 048
     Dates: start: 20160826
  12. LASIX [Concomitant]
     Active Substance: FUROSEMIDE
     Dosage: THE FRACTIONATION DOSE FREQUENCY IS UNCERTAIN. ?DOSE INTERVAL UNCERTAINTY
     Route: 065
  13. PERJETA [Suspect]
     Active Substance: PERTUZUMAB
     Indication: BREAST CANCER
     Dosage: FORM STRENGTH:420 MG/14 ML
     Route: 041
     Dates: start: 20160829, end: 20160829
  14. ASPARA POTASSIUM [Concomitant]
     Active Substance: POTASSIUM ASPARTATE
     Dosage: THE FRACTIONATION DOSE FREQUENCY IS UNCERTAIN. ?DOSE INTERVAL UNCERTAINTY
     Route: 065

REACTIONS (9)
  - Febrile neutropenia [Recovered/Resolved]
  - Decreased appetite [Not Recovered/Not Resolved]
  - Pleural effusion [Not Recovered/Not Resolved]
  - Cholecystitis acute [Recovered/Resolved]
  - Hypoaesthesia [Recovered/Resolved]
  - Ascites [Not Recovered/Not Resolved]
  - Anaphylactic reaction [Fatal]
  - Granulocytopenia [Unknown]
  - Nausea [Recovered/Resolved]

NARRATIVE: CASE EVENT DATE: 20160831
